FAERS Safety Report 7344674-4 (Version None)
Quarter: 2011Q1

REPORT INFORMATION
  Report Type: 
  Country: None (occurrence: None)
  Receive Date: 20110310
  Receipt Date: 20110228
  Transmission Date: 20110831
  Serious: Yes (Hospitalization, Disabling, Other)
  Sender: FDA-Public Use
  Company Number: US-MERCK-0812USA05213

PATIENT
  Age: 57 Year
  Sex: Female
  Weight: 82 kg

DRUGS (19)
  1. CLONAZEPAM [Concomitant]
     Indication: PANIC DISORDER
     Route: 065
     Dates: start: 20041026
  2. METHOTREXATE [Concomitant]
     Indication: RHEUMATOID ARTHRITIS
     Route: 065
     Dates: start: 20041026, end: 20080101
  3. FOSAMAX [Suspect]
     Route: 048
     Dates: start: 20040701
  4. BACLOFEN [Concomitant]
     Indication: MUSCLE RELAXANT THERAPY
     Route: 065
     Dates: start: 20040813
  5. LEVOTHROID [Concomitant]
     Indication: THYROID DISORDER
     Route: 065
     Dates: start: 20041130
  6. ZOLOFT [Concomitant]
     Indication: DEPRESSION
     Route: 065
     Dates: start: 20041026
  7. VERAPAMIL [Concomitant]
     Indication: TACHYCARDIA
     Route: 065
     Dates: start: 20050108
  8. HYDROCODONE [Concomitant]
     Indication: PAIN
     Route: 065
     Dates: start: 20050126
  9. FUROSEMIDE [Concomitant]
     Indication: CARDIAC FAILURE CONGESTIVE
     Route: 065
     Dates: start: 20041130
  10. ALBUTEROL [Concomitant]
     Route: 065
     Dates: start: 20040813
  11. LEVOTHYROXINE SODIUM [Concomitant]
     Indication: THYROID DISORDER
     Route: 065
     Dates: start: 20040813
  12. AMITRIPTYLINE HYDROCHLORIDE [Concomitant]
     Indication: SLEEP DISORDER
     Route: 065
     Dates: start: 20041026
  13. ISOSORBIDE DINITRATE [Concomitant]
     Indication: ANGINA PECTORIS
     Route: 065
     Dates: start: 20050108
  14. CEPHALEXIN [Concomitant]
     Route: 065
     Dates: start: 20050127, end: 20081119
  15. NITROGLYCERIN [Concomitant]
     Indication: ANGINA PECTORIS
     Route: 065
     Dates: start: 20050210
  16. POTASSIUM (UNSPECIFIED) [Concomitant]
     Route: 065
     Dates: start: 20040810
  17. KLOR-CON [Concomitant]
     Route: 065
     Dates: start: 20050519
  18. CYMBALTA [Concomitant]
     Indication: DEPRESSION
     Route: 065
     Dates: start: 20050701
  19. FOSAMAX [Suspect]
     Indication: OSTEOPOROSIS
     Route: 048
     Dates: start: 20050301, end: 20080204

REACTIONS (20)
  - OSTEONECROSIS OF JAW [None]
  - ANGINA PECTORIS [None]
  - GINGIVAL PAIN [None]
  - JAW CYST [None]
  - ANXIETY [None]
  - WEIGHT INCREASED [None]
  - TEMPOROMANDIBULAR JOINT SYNDROME [None]
  - REFUSAL OF TREATMENT BY PATIENT [None]
  - JOINT SWELLING [None]
  - HAEMORRHAGE SUBCUTANEOUS [None]
  - CHEST PAIN [None]
  - TOOTH DISORDER [None]
  - IMPAIRED HEALING [None]
  - INFECTION [None]
  - GASTRITIS [None]
  - CARDIAC FAILURE CONGESTIVE [None]
  - GINGIVAL INFECTION [None]
  - CARDIAC MURMUR [None]
  - TOOTH INFECTION [None]
  - CHRONIC OBSTRUCTIVE PULMONARY DISEASE [None]
